FAERS Safety Report 25862572 (Version 1)
Quarter: 2025Q3

REPORT INFORMATION
  Report Type: Spontaneous
  Country: JP (occurrence: JP)
  Receive Date: 20250930
  Receipt Date: 20250930
  Transmission Date: 20251020
  Serious: Yes (Hospitalization)
  Sender: ALEXION PHARMACEUTICALS
  Company Number: JP-ASTRAZENECA-202508JPN015925JP

PATIENT
  Sex: Female
  Weight: 50 kg

DRUGS (12)
  1. DAPAGLIFLOZIN [Suspect]
     Active Substance: DAPAGLIFLOZIN
     Indication: Cardiac failure congestive
     Dates: start: 20230509, end: 20230621
  2. ASPIRIN [Concomitant]
     Active Substance: ASPIRIN
  3. LANSOPRAZOLE [Concomitant]
     Active Substance: LANSOPRAZOLE
  4. ROSUVASTATIN [Concomitant]
     Active Substance: ROSUVASTATIN
  5. LINAGLIPTIN [Concomitant]
     Active Substance: LINAGLIPTIN
  6. DONEPEZIL [Concomitant]
     Active Substance: DONEPEZIL
  7. ENALAPRIL [Concomitant]
     Active Substance: ENALAPRIL
  8. BISOPROLOL [Concomitant]
     Active Substance: BISOPROLOL
  9. SPIRONOLACTONE [Concomitant]
     Active Substance: SPIRONOLACTONE
  10. FUROSEMIDE [Concomitant]
     Active Substance: FUROSEMIDE
     Dosage: 20 MILLIGRAM, QD
  11. AZOSEMIDE [Concomitant]
     Active Substance: AZOSEMIDE
  12. CANAGLIFLOZIN [Concomitant]
     Active Substance: CANAGLIFLOZIN
     Indication: Diabetes mellitus

REACTIONS (3)
  - Pyelonephritis [Recovering/Resolving]
  - Cardiac failure [Unknown]
  - Diabetes mellitus inadequate control [Unknown]

NARRATIVE: CASE EVENT DATE: 20230617
